FAERS Safety Report 25530837 (Version 2)
Quarter: 2025Q3

REPORT INFORMATION
  Report Type: Spontaneous
  Country: ZA (occurrence: ZA)
  Receive Date: 20250708
  Receipt Date: 20250826
  Transmission Date: 20251020
  Serious: No
  Sender: MYLAN
  Company Number: ZA-MYLANLABS-2025M1054537

PATIENT
  Age: 7 Year

DRUGS (1)
  1. EPIPEN [Suspect]
     Active Substance: EPINEPHRINE
     Indication: Hypersensitivity

REACTIONS (2)
  - Device failure [Unknown]
  - Drug dose omission by device [Unknown]
